FAERS Safety Report 9476766 (Version 1)
Quarter: 2013Q3

REPORT INFORMATION
  Report Type: Spontaneous
  Country: US (occurrence: US)
  Receive Date: 20130826
  Receipt Date: 20130826
  Transmission Date: 20140515
  Serious: Yes (Other)
  Sender: FDA-Public Use
  Company Number: US-BRISTOL-MYERS SQUIBB COMPANY-18988675

PATIENT
  Sex: Female
  Weight: 90.7 kg

DRUGS (3)
  1. KENALOG-40 INJ [Suspect]
     Dosage: BILATERAL TRANSFORAMINAL EPIDURAL INJECTION ON 19MAR2013
     Route: 008
     Dates: start: 20130213
  2. NORVASC [Concomitant]
  3. AZILECT [Concomitant]

REACTIONS (1)
  - Muscular weakness [Unknown]
